FAERS Safety Report 5893280-7 (Version None)
Quarter: 2008Q3

REPORT INFORMATION
  Report Type: 
  Country: None (occurrence: None)
  Receive Date: 20080923
  Receipt Date: 20080912
  Transmission Date: 20090109
  Serious: Yes (Death, Hospitalization)
  Sender: FDA-Public Use
  Company Number: A0748621A

PATIENT
  Age: 60 Year
  Sex: Male
  Weight: 125 kg

DRUGS (13)
  1. AVANDIA [Suspect]
     Indication: TYPE 2 DIABETES MELLITUS
     Dosage: 4MG IN THE MORNING
     Route: 048
     Dates: start: 20070321, end: 20070609
  2. LYRICA [Concomitant]
  3. PLAVIX [Concomitant]
  4. ALLOPURINOL [Concomitant]
  5. OMEPRAZOLE [Concomitant]
  6. CALCIUM CARBONATE [Concomitant]
  7. METOCLOPRAMIDE [Concomitant]
  8. ISOSORBIDE [Concomitant]
  9. GLIMEPIRIDE [Concomitant]
  10. FUROSEMIDE INTENSOL [Concomitant]
  11. CRESTOR [Concomitant]
  12. LEVOTHYROXINE SODIUM [Concomitant]
  13. IMIPRAMINE [Concomitant]

REACTIONS (14)
  - ANEURYSM [None]
  - ANGINA PECTORIS [None]
  - ARRHYTHMIA [None]
  - ARTERIOSCLEROSIS [None]
  - CARDIAC ARREST [None]
  - CARDIAC FAILURE CONGESTIVE [None]
  - CARDIAC HYPERTROPHY [None]
  - CARDIOVASCULAR DISORDER [None]
  - CAROTID ARTERY DISEASE [None]
  - CORONARY ARTERY DISEASE [None]
  - HYPERTENSION [None]
  - MYOCARDIAL INFARCTION [None]
  - MYOCARDIAL ISCHAEMIA [None]
  - PERIPHERAL VASCULAR DISORDER [None]
